FAERS Safety Report 17085650 (Version 1)
Quarter: 2019Q4

REPORT INFORMATION
  Report Type: Spontaneous
  Country: US (occurrence: US)
  Receive Date: 20191127
  Receipt Date: 20191127
  Transmission Date: 20200122
  Serious: Yes (Other)
  Sender: FDA-Public Use
  Company Number: None

PATIENT
  Age: 81 Year
  Sex: Female
  Weight: 68.5 kg

DRUGS (2)
  1. ON Q PAIN RELIEF SYSTEM [Suspect]
     Active Substance: DEVICE
     Indication: PAIN
     Dosage: ?          OTHER FREQUENCY:CONTINUOUS;?
     Route: 053
     Dates: start: 20191126, end: 20191127
  2. ROPIVACAINE 2% [Suspect]
     Active Substance: ROPIVACAINE

REACTIONS (6)
  - Post procedural complication [None]
  - Knee arthroplasty [None]
  - Sensory loss [None]
  - Motor dysfunction [None]
  - Hypoaesthesia [None]
  - Loss of proprioception [None]

NARRATIVE: CASE EVENT DATE: 20191127
